FAERS Safety Report 20745590 (Version 1)
Quarter: 2022Q2

REPORT INFORMATION
  Report Type: Spontaneous
  Country: US (occurrence: None)
  Receive Date: 20220423
  Receipt Date: 20220423
  Transmission Date: 20220721
  Serious: Yes (unspecified)
  Sender: FDA-Public Use
  Company Number: None

PATIENT
  Age: 31 Year
  Sex: Female
  Weight: 56.25 kg

DRUGS (10)
  1. JUVEDERM ULTRA XC [Suspect]
     Active Substance: HYALURONIC ACID\LIDOCAINE HYDROCHLORIDE
     Indication: Lip cosmetic procedure
     Dates: start: 20211116
  2. DESONIDE [Suspect]
     Active Substance: DESONIDE
     Indication: Cheilitis
     Dates: start: 20220301, end: 20220320
  3. DESLORATADINE [Concomitant]
     Active Substance: DESLORATADINE
  4. ZINC [Concomitant]
     Active Substance: ZINC
  5. VITAMIN C [Concomitant]
     Active Substance: ASCORBIC ACID
  6. VITAMIN D [Concomitant]
     Active Substance: VITAMIN D NOS
  7. PANTOTHENIC ACID [Concomitant]
     Active Substance: PANTOTHENIC ACID
  8. VITAMIN B6 [Concomitant]
     Active Substance: PYRIDOXINE HYDROCHLORIDE
  9. MAGNESIUM [Concomitant]
     Active Substance: MAGNESIUM
  10. OMEGA 3 [Concomitant]
     Active Substance: CAPSAICIN

REACTIONS (10)
  - Cheilitis [None]
  - Lip pruritus [None]
  - Erythema [None]
  - Skin swelling [None]
  - Skin burning sensation [None]
  - Staphylococcal infection [None]
  - Oral infection [None]
  - Rash [None]
  - Skin exfoliation [None]
  - Sensitive skin [None]

NARRATIVE: CASE EVENT DATE: 20220320
